FAERS Safety Report 17786106 (Version 1)
Quarter: 2020Q2

REPORT INFORMATION
  Report Type: Spontaneous
  Country: CN (occurrence: CN)
  Receive Date: 20200513
  Receipt Date: 20200513
  Transmission Date: 20200714
  Serious: Yes (Hospitalization)
  Sender: FDA-Public Use
  Company Number: CN-BAXTER-2020BAX009905

PATIENT
  Age: 51 Year
  Sex: Female
  Weight: 58.5 kg

DRUGS (4)
  1. 0.9% SODIUM CHLORIDE INJECTION [Suspect]
     Active Substance: SODIUM CHLORIDE
     Indication: MEDICATION DILUTION
     Dosage: ENDOXAN 900 MG + 0.9% SODIUM CHLORIDE 100 ML
     Route: 041
     Dates: start: 20200426, end: 20200426
  2. 5% GLUCOSE  INJECTION [Suspect]
     Active Substance: DEXTROSE
     Indication: MEDICATION DILUTION
     Dosage: DUOMEISU 40 MG + 5% GLUCOSE 250 ML
     Route: 041
     Dates: start: 20200426, end: 20200426
  3. ENDOXAN [Suspect]
     Active Substance: CYCLOPHOSPHAMIDE
     Indication: BREAST CANCER FEMALE
     Dosage: ENDOXAN 900 MG + 0.9% SODIUM CHLORIDE 100 ML
     Route: 041
     Dates: start: 20200426, end: 20200426
  4. DUOMEISU [Suspect]
     Active Substance: DOXORUBICIN HYDROCHLORIDE
     Indication: BREAST CANCER FEMALE
     Dosage: DUOMEISU 40 MG + 5% GLUCOSE 250 ML
     Route: 041
     Dates: start: 20200426, end: 20200426

REACTIONS (1)
  - Hypersensitivity [Recovering/Resolving]

NARRATIVE: CASE EVENT DATE: 20200426
